FAERS Safety Report 6860928-X (Version None)
Quarter: 2010Q3

REPORT INFORMATION
  Report Type: 
  Country: None (occurrence: None)
  Receive Date: 20100716
  Receipt Date: 20100707
  Transmission Date: 20110219
  Serious: Yes (Other)
  Sender: FDA-Public Use
  Company Number: US-001204

PATIENT
  Sex: Male
  Weight: 80 kg

DRUGS (6)
  1. KUVAN [Suspect]
     Indication: PHENYLKETONURIA
     Dosage: DOSE AND FREQUENCY NOT REPORTED ORAL, 1600 MG QD ORAL
     Route: 048
     Dates: start: 20100124, end: 20100101
  2. KUVAN [Suspect]
     Indication: PHENYLKETONURIA
     Dosage: DOSE AND FREQUENCY NOT REPORTED ORAL, 1600 MG QD ORAL
     Route: 048
     Dates: start: 20100318, end: 20100522
  3. PROTONIX /01253201/ [Concomitant]
  4. ZANTAC /00550802/ [Concomitant]
  5. TOPAMAX [Concomitant]
  6. CLARITIN /00917501/ [Concomitant]

REACTIONS (4)
  - ARTHRITIS [None]
  - JOINT LOCK [None]
  - JOINT SWELLING [None]
  - OEDEMA PERIPHERAL [None]
